FAERS Safety Report 6364096-2 (Version None)
Quarter: 2009Q3

REPORT INFORMATION
  Report Type: 
  Country: None (occurrence: None)
  Receive Date: 20090919
  Receipt Date: 20090814
  Transmission Date: 20100115
  Serious: No
  Sender: FDA-Public Use
  Company Number: US-ABBOTT-09P-163-0579680-00

PATIENT
  Sex: Male
  Weight: 97.61 kg

DRUGS (12)
  1. HUMIRA [Suspect]
     Indication: CROHN'S DISEASE
     Route: 058
     Dates: start: 20090101
  2. HUMIRA [Suspect]
     Dates: start: 20090601
  3. SOLARIS [Concomitant]
     Indication: PAROXYSMAL NOCTURNAL HAEMOGLOBINURIA
     Route: 042
  4. SOLARIS [Concomitant]
  5. LOPERAMIDE [Concomitant]
     Indication: DIARRHOEA
  6. ASACOL [Concomitant]
     Indication: DRUG USE FOR UNKNOWN INDICATION
  7. NEXIUM [Concomitant]
     Indication: DRUG USE FOR UNKNOWN INDICATION
     Route: 048
  8. PREDNISONE [Concomitant]
     Indication: DRUG USE FOR UNKNOWN INDICATION
     Dosage: 2.5 MILLIGRAMS ALTERNATING WITH 5 MILLIGRAMS ONCE EVERY OTHER DAY
  9. MULTI-VITAMIN [Concomitant]
     Indication: VITAMIN SUPPLEMENTATION
     Route: 048
  10. CALCIUM WITH VITAMIN D [Concomitant]
     Indication: MINERAL SUPPLEMENTATION
     Route: 048
  11. CANASA [Concomitant]
     Indication: HAEMATOCHEZIA
     Route: 054
  12. CANASA [Concomitant]
     Indication: PROPHYLAXIS

REACTIONS (5)
  - DIARRHOEA [None]
  - DRUG INEFFECTIVE [None]
  - EMOTIONAL DISTRESS [None]
  - HAEMATOCHEZIA [None]
  - MUCOUS STOOLS [None]
